FAERS Safety Report 8493719-7 (Version None)
Quarter: 2012Q3

REPORT INFORMATION
  Report Type: 
  Country: None (occurrence: None)
  Receive Date: 20120706
  Receipt Date: 20120618
  Transmission Date: 20120928
  Serious: No
  Sender: FDA-Public Use
  Company Number: US-ENDO PHARMACEUTICALS INC.-OPCR20121116

PATIENT
  Sex: Female

DRUGS (7)
  1. FENTANYL-100 [Concomitant]
     Indication: PRODUCT USED FOR UNKNOWN INDICATION
     Dosage: UNK
  2. OPANA ER [Concomitant]
     Route: 048
     Dates: end: 20120401
  3. OPANA [Concomitant]
     Indication: PAIN
     Route: 048
  4. ELAVIL [Concomitant]
     Indication: PRODUCT USED FOR UNKNOWN INDICATION
     Dosage: UNK
  5. OPANA ER [Suspect]
     Indication: PAIN
     Route: 048
     Dates: start: 20120401
  6. BACLOFEN [Concomitant]
     Indication: PRODUCT USED FOR UNKNOWN INDICATION
     Dosage: UNK
     Route: 048
  7. CORTISONE ACETATE [Concomitant]
     Indication: PRODUCT USED FOR UNKNOWN INDICATION
     Dosage: UNK

REACTIONS (7)
  - FOREIGN BODY [None]
  - NEUROPATHY PERIPHERAL [None]
  - INSOMNIA [None]
  - ABDOMINAL PAIN UPPER [None]
  - MEDICATION RESIDUE [None]
  - DRUG INEFFECTIVE [None]
  - WITHDRAWAL SYNDROME [None]
